FAERS Safety Report 6182182-7 (Version None)
Quarter: 2009Q2

REPORT INFORMATION
  Report Type: 
  Country: None (occurrence: None)
  Receive Date: 20090507
  Receipt Date: 20090427
  Transmission Date: 20091009
  Serious: Yes (Hospitalization, Other)
  Sender: FDA-Public Use
  Company Number: PHHY2009BR16511

PATIENT
  Sex: Female
  Weight: 75 kg

DRUGS (10)
  1. EXELON [Suspect]
     Indication: MEMORY IMPAIRMENT
     Dosage: 9 MG/5 CM2 PATCH/DAY
     Route: 062
     Dates: start: 20080101
  2. EXELON [Suspect]
     Dosage: 18MG/10CM2  PATCH/DAY
     Route: 062
     Dates: start: 20080905
  3. MAREVAN [Concomitant]
     Indication: CARDIAC DISORDER
     Dosage: UNK
     Dates: end: 20090201
  4. MACRODANTIN [Concomitant]
     Indication: INFECTION
     Dosage: 1 DF, QD
  5. MACRODANTIN [Concomitant]
     Dosage: 1 DF, Q6H
  6. HALDOL [Concomitant]
     Dosage: 10-20 DROPS
  7. HALDOL [Concomitant]
     Dosage: 5 DROPS OF HALDOL IN THE MORNING AND 5 DROPS IN THE AFTERNOON
     Dates: end: 20090401
  8. HALDOL [Concomitant]
     Dosage: 5 DROPS OF HALDOL IN THE MORNING
  9. ZYPREXA [Concomitant]
     Dosage: 1 DF IN THE AFTERNOON, QD
  10. ZYPREXA [Concomitant]
     Dosage: 1 DF IN THE MORNING, QD

REACTIONS (16)
  - APPLICATION SITE ERYTHEMA [None]
  - APPLICATION SITE PRURITUS [None]
  - BEDRIDDEN [None]
  - BLOOD GLUCOSE INCREASED [None]
  - CEREBROVASCULAR ACCIDENT [None]
  - DEHYDRATION [None]
  - DYSPHAGIA [None]
  - GENERALISED ERYTHEMA [None]
  - MALAISE [None]
  - MALNUTRITION [None]
  - MOVEMENT DISORDER [None]
  - MUSCULOSKELETAL STIFFNESS [None]
  - OEDEMA PERIPHERAL [None]
  - PRURITUS GENERALISED [None]
  - SPEECH DISORDER [None]
  - URINARY TRACT INFECTION [None]
